FAERS Safety Report 6794230-1 (Version None)
Quarter: 2010Q2

REPORT INFORMATION
  Report Type: 
  Country: None (occurrence: None)
  Receive Date: 20100625
  Receipt Date: 20100617
  Transmission Date: 20101027
  Serious: Yes (Hospitalization)
  Sender: FDA-Public Use
  Company Number: US-BIOGENIDEC-2010BI020765

PATIENT
  Sex: Female

DRUGS (1)
  1. AVONEX [Suspect]
     Indication: MULTIPLE SCLEROSIS
     Route: 030
     Dates: start: 20090211

REACTIONS (5)
  - AMNESIA [None]
  - ASTHENIA [None]
  - FALL [None]
  - HALLUCINATION [None]
  - TRANSIENT ISCHAEMIC ATTACK [None]
